FAERS Safety Report 22281103 (Version 4)
Quarter: 2023Q2

REPORT INFORMATION
  Report Type: Spontaneous
  Country: US (occurrence: US)
  Receive Date: 20230504
  Receipt Date: 20230529
  Transmission Date: 20230722
  Serious: Yes (Hospitalization, Other)
  Sender: FDA-Public Use
  Company Number: US-009507513-2304USA009963

PATIENT
  Sex: Female

DRUGS (1)
  1. KEYTRUDA [Suspect]
     Active Substance: PEMBROLIZUMAB
     Indication: Malignant melanoma stage III
     Dosage: UNK
     Route: 042
     Dates: start: 20230315

REACTIONS (10)
  - Vomiting [Unknown]
  - Diarrhoea [Unknown]
  - Fatigue [Unknown]
  - Myalgia [Unknown]
  - Arthralgia [Unknown]
  - Asthenia [Unknown]
  - Dehydration [Unknown]
  - Feeling abnormal [Unknown]
  - Drug ineffective [Unknown]
  - Illness [Unknown]

NARRATIVE: CASE EVENT DATE: 20230101
